FAERS Safety Report 5064221-X (Version None)
Quarter: 2006Q3

REPORT INFORMATION
  Report Type: 
  Country: None (occurrence: None)
  Receive Date: 20060728
  Receipt Date: 20060518
  Transmission Date: 20061208
  Serious: No
  Sender: FDA-Public Use
  Company Number: 2006US-01831

PATIENT
  Age: 40 Year
  Sex: Female

DRUGS (3)
  1. ZANTAC [Suspect]
     Indication: DRUG USE FOR UNKNOWN INDICATION
     Route: 065
  2. NEXIUM [Concomitant]
  3. NORVASC [Concomitant]

REACTIONS (1)
  - RASH [None]
